FAERS Safety Report 18459969 (Version 4)
Quarter: 2021Q1

REPORT INFORMATION
  Report Type: Spontaneous
  Country: US (occurrence: US)
  Receive Date: 20201103
  Receipt Date: 20210317
  Transmission Date: 20210419
  Serious: Yes (Death, Other)
  Sender: FDA-Public Use
  Company Number: US-TAKEDA-2020TUS047627

PATIENT

DRUGS (39)
  1. PREVACID [Suspect]
     Active Substance: LANSOPRAZOLE
     Indication: GASTROOESOPHAGEAL REFLUX DISEASE
     Dosage: UNK
     Route: 048
     Dates: start: 1999, end: 2019
  2. SULFASALAZINE. [Concomitant]
     Active Substance: SULFASALAZINE
     Indication: ANTIINFLAMMATORY THERAPY
     Dosage: UNK
     Dates: start: 2007, end: 2019
  3. LISINOPRIL. [Concomitant]
     Active Substance: LISINOPRIL
     Indication: BLOOD PRESSURE ABNORMAL
     Dosage: UNK
     Dates: start: 2007, end: 2019
  4. PLAVIX [Concomitant]
     Active Substance: CLOPIDOGREL BISULFATE
     Indication: ANTICOAGULANT THERAPY
     Dosage: UNK
     Dates: start: 2007, end: 2019
  5. TRAMADOL. [Concomitant]
     Active Substance: TRAMADOL
     Indication: PAIN
     Dosage: UNK
     Dates: start: 2007, end: 2019
  6. CIPROFLOXACIN. [Concomitant]
     Active Substance: CIPROFLOXACIN
     Indication: INFECTION
     Dosage: UNK
     Dates: start: 2007, end: 2019
  7. SIMVASTATIN. [Concomitant]
     Active Substance: SIMVASTATIN
     Indication: BLOOD CHOLESTEROL
     Dosage: UNK
     Dates: start: 2007, end: 2019
  8. NEXIUM [Suspect]
     Active Substance: ESOMEPRAZOLE MAGNESIUM
     Dosage: 40 MILLIGRAM, QD
     Route: 048
     Dates: start: 2013, end: 2018
  9. PREVACID [Suspect]
     Active Substance: LANSOPRAZOLE
     Dosage: 30 MILLIGRAM, QD
     Route: 048
     Dates: start: 2008, end: 2009
  10. LANSOPRAZOLE. [Suspect]
     Active Substance: LANSOPRAZOLE
     Indication: GASTROOESOPHAGEAL REFLUX DISEASE
     Dosage: 30 MILLIGRAM, QD
     Route: 048
     Dates: start: 2009, end: 2013
  11. PRILOSEC [Suspect]
     Active Substance: OMEPRAZOLE MAGNESIUM
     Indication: GASTROOESOPHAGEAL REFLUX DISEASE
     Dosage: UNK
     Route: 048
     Dates: start: 1999, end: 2019
  12. PRILOSEC [Suspect]
     Active Substance: OMEPRAZOLE MAGNESIUM
     Dosage: 40 MILLIGRAM, QD
     Route: 048
     Dates: start: 2008
  13. OMEPRAZOLE. [Suspect]
     Active Substance: OMEPRAZOLE
     Dosage: UNK
     Route: 048
     Dates: start: 2003, end: 2019
  14. ZANTAC 75 [Concomitant]
     Active Substance: RANITIDINE HYDROCHLORIDE
     Dosage: UNK
  15. ADVIL 12HOUR [Concomitant]
     Active Substance: IBUPROFEN
     Indication: PAIN
     Dosage: UNK
  16. CELECOXIB. [Concomitant]
     Active Substance: CELECOXIB
     Indication: PAIN
     Dosage: UNK
     Dates: start: 2007, end: 2019
  17. MELOXICAM. [Concomitant]
     Active Substance: MELOXICAM
     Indication: ANTIINFLAMMATORY THERAPY
     Dosage: UNK
     Dates: start: 2007, end: 2019
  18. NEXIUM 24HR [Suspect]
     Active Substance: ESOMEPRAZOLE MAGNESIUM
     Indication: GASTROOESOPHAGEAL REFLUX DISEASE
     Dosage: UNK
     Route: 048
     Dates: start: 2014, end: 2019
  19. RANITIDINE. [Concomitant]
     Active Substance: RANITIDINE
     Dosage: UNK
  20. LIALDA [Concomitant]
     Active Substance: MESALAMINE
     Indication: PAIN
     Dosage: UNK
     Dates: start: 2007, end: 2019
  21. DICLOFENAC [Concomitant]
     Active Substance: DICLOFENAC
     Indication: ANTIINFLAMMATORY THERAPY
     Dosage: UNK
     Dates: start: 2007, end: 2019
  22. HYDROCHLOROTHIAZIDE. [Concomitant]
     Active Substance: HYDROCHLOROTHIAZIDE
     Indication: OEDEMA
  23. CELEBREX [Concomitant]
     Active Substance: CELECOXIB
     Indication: PAIN
     Dosage: UNK
     Dates: start: 2007, end: 2019
  24. RANITIDINE HYDROCHLORIDE. [Concomitant]
     Active Substance: RANITIDINE HYDROCHLORIDE
  25. OMEPRAZOLE. [Suspect]
     Active Substance: OMEPRAZOLE
     Indication: GASTROOESOPHAGEAL REFLUX DISEASE
     Dosage: 40 MILLIGRAM, QD
     Route: 048
     Dates: start: 2009
  26. TAGAMET HB [Concomitant]
     Active Substance: CIMETIDINE
     Dosage: UNK
  27. FAMOTIDINE. [Concomitant]
     Active Substance: FAMOTIDINE
     Dosage: UNK
  28. DOXYCYCLINE. [Concomitant]
     Active Substance: DOXYCYCLINE
     Indication: INFECTION
     Dosage: UNK
     Dates: start: 2007, end: 2019
  29. LISINOPRIL. [Concomitant]
     Active Substance: LISINOPRIL
     Indication: CARDIAC FAILURE
  30. HYDROCHLOROTHIAZIDE. [Concomitant]
     Active Substance: HYDROCHLOROTHIAZIDE
     Indication: BLOOD PRESSURE ABNORMAL
  31. CIMETIDINE [Concomitant]
     Active Substance: CIMETIDINE
  32. PANTOPRAZOLE [Suspect]
     Active Substance: PANTOPRAZOLE
     Indication: GASTROOESOPHAGEAL REFLUX DISEASE
     Dosage: 40 MILLIGRAM, QD
     Route: 048
     Dates: start: 2017
  33. NEXIUM [Suspect]
     Active Substance: ESOMEPRAZOLE MAGNESIUM
     Indication: GASTROOESOPHAGEAL REFLUX DISEASE
     Dosage: UNK
     Route: 048
     Dates: start: 1999, end: 2019
  34. FLUOXETINE [Concomitant]
     Active Substance: FLUOXETINE HYDROCHLORIDE
     Dosage: UNK
     Dates: start: 2007, end: 2019
  35. AZITHROMYCIN ANHYDROUS. [Concomitant]
     Active Substance: AZITHROMYCIN ANHYDROUS
     Indication: INFECTION
     Dosage: UNK
     Dates: start: 2007, end: 2019
  36. CALCIUM CARBONATE;FAMOTIDINE;MAGNESIUM HYDROXIDE [Concomitant]
  37. MOTRIN CHILDREN [Concomitant]
     Active Substance: IBUPROFEN
     Indication: PAIN
     Dosage: UNK
  38. METHOTREXATE. [Concomitant]
     Active Substance: METHOTREXATE
     Indication: CHEMOTHERAPY
     Dosage: UNK
     Dates: start: 2007, end: 2019
  39. TRIMETHOPRIM. [Concomitant]
     Active Substance: TRIMETHOPRIM
     Indication: INFECTION
     Dosage: UNK
     Dates: start: 2007, end: 2019

REACTIONS (5)
  - Multiple organ dysfunction syndrome [Fatal]
  - Acute kidney injury [Fatal]
  - Gastric cancer [Fatal]
  - Septic shock [Fatal]
  - Gastrointestinal necrosis [Fatal]

NARRATIVE: CASE EVENT DATE: 2013
